FAERS Safety Report 4900859-5 (Version None)
Quarter: 2006Q1

REPORT INFORMATION
  Report Type: 
  Country: None (occurrence: None)
  Receive Date: 20060201
  Receipt Date: 20060123
  Transmission Date: 20060701
  Serious: Yes (Hospitalization, Other)
  Sender: FDA-Public Use
  Company Number: 2005-10-1270

PATIENT
  Age: 55 Year
  Sex: Male
  Weight: 98 kg

DRUGS (6)
  1. PEG-INTRON [Suspect]
     Indication: HEPATITIS C
     Dosage: 100 MCG QW SUBCUTANEOUS
     Route: 058
     Dates: start: 20050407, end: 20051028
  2. REBETOL [Suspect]
     Indication: HEPATITIS C
     Dosage: 100-400* MG ORAL
     Route: 048
     Dates: start: 20050407, end: 20050425
  3. REBETOL [Suspect]
     Indication: HEPATITIS C
     Dosage: 100-400* MG ORAL
     Route: 048
     Dates: start: 20050425, end: 20051028
  4. REBETOL [Suspect]
     Indication: HEPATITIS C
     Dosage: 100-400* MG ORAL
     Route: 048
     Dates: start: 20050407, end: 20051104
  5. REBETOL [Suspect]
     Indication: HEPATITIS C
     Dosage: 100-400* MG ORAL
     Route: 048
     Dates: start: 20051028, end: 20051104
  6. OMEPRAL (OMEPRAZOLE0 TABLETS [Concomitant]

REACTIONS (3)
  - HEPATIC ENCEPHALOPATHY [None]
  - HEPATIC FAILURE [None]
  - INSOMNIA [None]
